FAERS Safety Report 18590053 (Version 1)
Quarter: 2020Q4

REPORT INFORMATION
  Report Type: Spontaneous
  Country: US (occurrence: US)
  Receive Date: 20201208
  Receipt Date: 20201208
  Transmission Date: 20210114
  Serious: Yes (Other)
  Sender: FDA-Public Use
  Company Number: None

PATIENT
  Age: 33 Year
  Sex: Male
  Weight: 103.5 kg

DRUGS (3)
  1. AMLODIPINE BESYLATE 5MG TAB [Suspect]
     Active Substance: AMLODIPINE BESYLATE
     Indication: ANXIETY
     Route: 048
     Dates: start: 20200420, end: 20201115
  2. HYDROXYZINE HCL 10MG TABLET [Suspect]
     Active Substance: HYDROXYZINE HYDROCHLORIDE
  3. AMLODIPINE BESYLATE 5MG TAB [Suspect]
     Active Substance: AMLODIPINE BESYLATE
     Indication: BLOOD PRESSURE MEASUREMENT
     Route: 048
     Dates: start: 20200420, end: 20201115

REACTIONS (3)
  - Aggression [None]
  - Hallucination [None]
  - Physical assault [None]

NARRATIVE: CASE EVENT DATE: 20201115
